FAERS Safety Report 9193743 (Version 1)
Quarter: 2013Q1

REPORT INFORMATION
  Report Type: Report from Study
  Country: GB (occurrence: GB)
  Receive Date: 20130327
  Receipt Date: 20130327
  Transmission Date: 20140127
  Serious: Yes (Hospitalization)
  Sender: FDA-Public Use
  Company Number: GB-BAYER-2012-029865

PATIENT
  Age: 54 Year
  Sex: Female

DRUGS (3)
  1. SORAFENIB (RAF KINASE INHIBITOR) [Suspect]
     Dosage: 400 MG, BID
     Route: 048
     Dates: start: 20110824, end: 20111202
  2. SORAFENIB (RAF KINASE INHIBITOR) [Suspect]
     Dosage: 400 MG, BID
     Route: 048
     Dates: start: 20110824, end: 20111202
  3. TRAMADOL [Concomitant]
     Indication: PULMONARY EMBOLISM
     Dosage: 50 MG/DAY
     Route: 048
     Dates: start: 201112

REACTIONS (2)
  - Pulmonary embolism [Not Recovered/Not Resolved]
  - Upper respiratory tract infection [Recovered/Resolved]
